FAERS Safety Report 13694821 (Version 1)
Quarter: 2017Q2

REPORT INFORMATION
  Report Type: Spontaneous
  Country: FR (occurrence: FR)
  Receive Date: 20170627
  Receipt Date: 20170627
  Transmission Date: 20170830
  Serious: Yes (Other)
  Sender: FDA-Public Use
  Company Number: FR-PFIZER INC-2017211643

PATIENT
  Age: 50 Year
  Sex: Male

DRUGS (16)
  1. MAG 2 /00454301/ [Concomitant]
     Active Substance: MAGNESIUM CARBONATE
     Dosage: UNK
  2. JAMYLENE /00061602/ [Concomitant]
     Dosage: UNK
  3. NORMACOL [Concomitant]
     Active Substance: KARAYA GUM
     Dosage: UNK
  4. PIPERACILLIN AND TAZOBACTAM [Suspect]
     Active Substance: PIPERACILLIN SODIUM\TAZOBACTAM SODIUM
     Indication: STAPHYLOCOCCAL INFECTION
     Dosage: 4 G, 4X/DAY
     Route: 042
     Dates: start: 20170420, end: 20170428
  5. GUTRON [Concomitant]
     Active Substance: MIDODRINE
     Dosage: UNK
  6. SERTRALINE [Concomitant]
     Active Substance: SERTRALINE HYDROCHLORIDE
     Dosage: UNK
  7. ZYVOXID [Suspect]
     Active Substance: LINEZOLID
     Indication: STAPHYLOCOCCAL INFECTION
     Dosage: 600 MG, 2X/DAY
     Route: 042
     Dates: start: 20170420, end: 20170428
  8. LASILIX /00032601/ [Suspect]
     Active Substance: FUROSEMIDE
     Indication: GENERALISED OEDEMA
     Dosage: UNK
     Route: 042
     Dates: start: 20170426, end: 20170428
  9. SERESTA [Concomitant]
     Active Substance: OXAZEPAM
     Dosage: UNK
  10. MICROLAX /01109601/ [Concomitant]
     Dosage: UNK
  11. EDUCTYL [Concomitant]
     Active Substance: POTASSIUM BITARTRATE\SODIUM BICARBONATE
     Dosage: UNK
  12. LYRICA [Concomitant]
     Active Substance: PREGABALIN
     Dosage: UNK
  13. DOLIPRANE [Concomitant]
     Active Substance: ACETAMINOPHEN
     Dosage: UNK
  14. VITASCORBOL /00008001/ [Concomitant]
     Dosage: UNK
  15. ACTISKENAN [Concomitant]
     Active Substance: MORPHINE SULFATE
     Dosage: UNK
  16. TRANSIPEGLIB [Concomitant]
     Dosage: UNK

REACTIONS (1)
  - Pancreatitis [Recovering/Resolving]

NARRATIVE: CASE EVENT DATE: 201704
